FAERS Safety Report 20230214 (Version 1)
Quarter: 2021Q4

REPORT INFORMATION
  Report Type: Spontaneous
  Country: HR (occurrence: HR)
  Receive Date: 20211226
  Receipt Date: 20211226
  Transmission Date: 20220303
  Serious: Yes (Hospitalization)
  Sender: FDA-Public Use
  Company Number: HR-JNJFOC-20211245941

PATIENT
  Age: 78 Year

DRUGS (1)
  1. IMBRUVICA [Suspect]
     Active Substance: IBRUTINIB
     Indication: Waldenstrom^s macroglobulinaemia
     Dosage: 3X140 MG
     Route: 048
     Dates: start: 20210518

REACTIONS (6)
  - Femoral neck fracture [Unknown]
  - Procedural haemorrhage [Unknown]
  - Pyrexia [Unknown]
  - Urinary tract infection [Unknown]
  - Oedema peripheral [Unknown]
  - Hypoalbuminaemia [Unknown]

NARRATIVE: CASE EVENT DATE: 20210701
